FAERS Safety Report 5420948-9 (Version None)
Quarter: 2007Q3

REPORT INFORMATION
  Report Type: 
  Country: None (occurrence: None)
  Receive Date: 20070817
  Receipt Date: 20070817
  Transmission Date: 20080115
  Serious: Yes (Hospitalization)
  Sender: FDA-Public Use
  Company Number: None

PATIENT
  Age: 67 Year
  Sex: Male

DRUGS (2)
  1. DIGOXIN [Suspect]
     Indication: CARDIAC FAILURE CONGESTIVE
     Dosage: 0.25MG EVERY DAY PO
     Route: 048
     Dates: start: 20040630
  2. HYDROCHLOROTHIAZIDE [Suspect]
     Dosage: 25MG EVERY DAY PO
     Route: 048
     Dates: start: 20070802, end: 20070812

REACTIONS (3)
  - HYPOKALAEMIA [None]
  - SYNCOPE [None]
  - VENTRICULAR ARRHYTHMIA [None]
